FAERS Safety Report 7229288-9 (Version None)
Quarter: 2011Q1

REPORT INFORMATION
  Report Type: 
  Country: None (occurrence: None)
  Receive Date: 20110117
  Receipt Date: 20110106
  Transmission Date: 20110831
  Serious: Yes (Other)
  Sender: FDA-Public Use
  Company Number: IT-JNJFOC-20110101943

PATIENT

DRUGS (10)
  1. DOXORUBICIN HYDROCHLORIDE [Suspect]
     Indication: IMMUNOBLASTIC LYMPHOMA
     Route: 042
  2. PREDNISOLONE [Suspect]
     Indication: PERIPHERAL T-CELL LYMPHOMA UNSPECIFIED
     Route: 065
  3. DOXORUBICIN HYDROCHLORIDE [Suspect]
     Indication: PERIPHERAL T-CELL LYMPHOMA UNSPECIFIED
     Route: 042
  4. CYCLOPHOSPHAMIDE [Suspect]
     Indication: IMMUNOBLASTIC LYMPHOMA
     Route: 065
  5. VINCRISTINE [Suspect]
     Indication: IMMUNOBLASTIC LYMPHOMA
     Route: 065
  6. ALEMTUZUMAB [Suspect]
     Indication: PERIPHERAL T-CELL LYMPHOMA UNSPECIFIED
     Route: 065
  7. CYCLOPHOSPHAMIDE [Suspect]
     Indication: PERIPHERAL T-CELL LYMPHOMA UNSPECIFIED
     Route: 065
  8. ALEMTUZUMAB [Suspect]
     Indication: IMMUNOBLASTIC LYMPHOMA
     Route: 065
  9. VINCRISTINE [Suspect]
     Indication: PERIPHERAL T-CELL LYMPHOMA UNSPECIFIED
     Route: 065
  10. PREDNISOLONE [Suspect]
     Indication: IMMUNOBLASTIC LYMPHOMA
     Route: 065

REACTIONS (1)
  - POSTERIOR REVERSIBLE ENCEPHALOPATHY SYNDROME [None]
